FAERS Safety Report 17219743 (Version 3)
Quarter: 2020Q1

REPORT INFORMATION
  Report Type: Report from Study
  Country: US (occurrence: US)
  Receive Date: 20191231
  Receipt Date: 20200117
  Transmission Date: 20200409
  Serious: Yes (Other)
  Sender: FDA-Public Use
  Company Number: US-PFIZER INC-2019512201

PATIENT
  Age: 69 Year
  Sex: Female

DRUGS (2)
  1. CRESEMBA [Suspect]
     Active Substance: ISAVUCONAZONIUM SULFATE
     Indication: FUNGAL INFECTION
     Dosage: 372 MG, 1X/DAY
     Route: 048
     Dates: start: 2017
  2. VFEND [Suspect]
     Active Substance: VORICONAZOLE
     Indication: LOWER RESPIRATORY TRACT INFECTION FUNGAL
     Dosage: UNK
     Route: 065

REACTIONS (6)
  - Faeces discoloured [Unknown]
  - Product use in unapproved indication [Unknown]
  - Blood potassium decreased [Unknown]
  - Off label use [Unknown]
  - Infection [Unknown]
  - Lower respiratory tract infection fungal [Unknown]

NARRATIVE: CASE EVENT DATE: 20190820
